FAERS Safety Report 10307419 (Version 4)
Quarter: 2015Q1

REPORT INFORMATION
  Report Type: Spontaneous
  Country: US (occurrence: US)
  Receive Date: 20140716
  Receipt Date: 20150213
  Transmission Date: 20150720
  Serious: Yes (Hospitalization, Other)
  Sender: FDA-Public Use
  Company Number: US-AMGEN-USASP2014050179

PATIENT
  Age: 26 Year
  Sex: Female
  Weight: 70.3 kg

DRUGS (5)
  1. VITAMIN D                          /00107901/ [Concomitant]
     Active Substance: ERGOCALCIFEROL
     Dosage: 1000 IU, QD
  2. ZOLOFT [Concomitant]
     Active Substance: SERTRALINE HYDROCHLORIDE
     Indication: ANXIETY
     Dosage: 25 MG, QD
     Dates: start: 201308, end: 201311
  3. IRON [Concomitant]
     Active Substance: IRON
     Indication: ANAEMIA
     Dosage: UNK UNK, QD
  4. VITAMIN C [Concomitant]
     Active Substance: ASCORBIC ACID
     Dosage: UNK UNK, QD
  5. ENBREL [Suspect]
     Active Substance: ETANERCEPT
     Indication: PSORIATIC ARTHROPATHY
     Dosage: 50 MG, QWK
     Route: 058
     Dates: start: 2012, end: 20140907

REACTIONS (10)
  - Breast pain [Recovered/Resolved]
  - Breast mass [Recovered/Resolved]
  - Nipple pain [Recovered/Resolved]
  - Breast abscess [Recovered/Resolved]
  - Fructose intolerance [Unknown]
  - Erythema [Recovered/Resolved]
  - Lactation disorder [Not Recovered/Not Resolved]
  - Wound [Recovered/Resolved]
  - Uterine contractions during pregnancy [Recovered/Resolved]
  - Induced labour [Recovered/Resolved]

NARRATIVE: CASE EVENT DATE: 2014
